FAERS Safety Report 11768447 (Version 1)
Quarter: 2015Q4

REPORT INFORMATION
  Report Type: Spontaneous
  Country: DE (occurrence: DE)
  Receive Date: 20151123
  Receipt Date: 20151123
  Transmission Date: 20160304
  Serious: Yes (Other)
  Sender: FDA-Public Use
  Company Number: DE-BAYER-2015-473555

PATIENT

DRUGS (1)
  1. STIVARGA [Suspect]
     Active Substance: REGORAFENIB

REACTIONS (1)
  - Embolism [None]
